FAERS Safety Report 21283254 (Version 1)
Quarter: 2022Q3

REPORT INFORMATION
  Report Type: Spontaneous
  Country: US (occurrence: US)
  Receive Date: 20220901
  Receipt Date: 20220901
  Transmission Date: 20221027
  Serious: No
  Sender: FDA-Public Use
  Company Number: US-BRISTOL-MYERS SQUIBB COMPANY-2022-098910

PATIENT
  Age: 73 Year
  Sex: Female
  Weight: 99.79 kg

DRUGS (1)
  1. REVLIMID [Suspect]
     Active Substance: LENALIDOMIDE
     Indication: Myelodysplastic syndrome
     Dosage: FREQUENCY : DAILY 1 -21 DAYS THEN 7 DAYS OFF.
     Route: 048
     Dates: start: 20211005

REACTIONS (1)
  - Impaired healing [Recovered/Resolved]
